FAERS Safety Report 18580935 (Version 1)
Quarter: 2020Q4

REPORT INFORMATION
  Report Type: Spontaneous
  Country: CN (occurrence: CN)
  Receive Date: 20201204
  Receipt Date: 20201204
  Transmission Date: 20210114
  Serious: Yes (Hospitalization)
  Sender: FDA-Public Use
  Company Number: CN-BAYER-2020-259432

PATIENT
  Age: 51 Year
  Sex: Female
  Weight: 53 kg

DRUGS (5)
  1. INSULIN [Interacting]
     Active Substance: INSULIN NOS
     Indication: BLOOD GLUCOSE ABNORMAL
     Dosage: UNK
     Dates: start: 202011
  2. GLUCOBAY [Interacting]
     Active Substance: ACARBOSE
     Indication: BLOOD GLUCOSE INCREASED
     Dosage: 50 MG, TID
     Route: 048
     Dates: start: 20201118, end: 20201120
  3. GLIMEPIRIDE. [Interacting]
     Active Substance: GLIMEPIRIDE
     Indication: BLOOD GLUCOSE ABNORMAL
     Dosage: 1 DF, QD
     Dates: start: 2015
  4. GLUCOBAY [Suspect]
     Active Substance: ACARBOSE
     Indication: DIABETES MELLITUS INADEQUATE CONTROL
     Dosage: 3 DF, TID
     Route: 048
     Dates: start: 2015, end: 202011
  5. BASALIN [Interacting]
     Active Substance: INSULIN GLARGINE
     Indication: BLOOD GLUCOSE ABNORMAL
     Dosage: 10 IU
     Dates: start: 2015

REACTIONS (9)
  - Labelled drug-drug interaction medication error [None]
  - Labelled drug-drug interaction medication error [None]
  - Vision blurred [None]
  - Dry mouth [None]
  - Constipation [None]
  - Diabetic complication [None]
  - Pain in extremity [None]
  - Abdominal distension [Recovering/Resolving]
  - Pruritus [None]

NARRATIVE: CASE EVENT DATE: 2015
